FAERS Safety Report 8438910-0 (Version None)
Quarter: 2012Q2

REPORT INFORMATION
  Report Type: 
  Country: None (occurrence: None)
  Receive Date: 20120605
  Receipt Date: 20120531
  Transmission Date: 20120825
  Serious: Yes (Life-Threatening)
  Sender: FDA-Public Use
  Company Number: 2012SP029458

PATIENT
  Age: 64 Year
  Sex: Female
  Weight: 43.5 kg

DRUGS (4)
  1. INTERFERON BETA NOS [Suspect]
     Indication: HEPATITIS C
     Dosage: 6 MIU;TIW;INDRP
     Route: 041
     Dates: start: 20091111, end: 20100702
  2. AMLODIPINE [Concomitant]
  3. REBETOL [Suspect]
     Indication: HEPATITIS C
     Dosage: 600 MG;QD; PO
     Route: 048
     Dates: start: 20091111, end: 20100702
  4. LIPITOR [Concomitant]

REACTIONS (1)
  - LUNG NEOPLASM MALIGNANT [None]
